FAERS Safety Report 16801412 (Version 2)
Quarter: 2019Q4

REPORT INFORMATION
  Report Type: Spontaneous
  Country: GR (occurrence: GR)
  Receive Date: 20190912
  Receipt Date: 20191007
  Transmission Date: 20200122
  Serious: Yes (Death, Hospitalization, Other)
  Sender: FDA-Public Use
  Company Number: GR-AMGEN-GRCSP2019147394

PATIENT
  Age: 66 Year
  Sex: Female
  Weight: 105 kg

DRUGS (8)
  1. SITAGLIPTIN [Concomitant]
     Active Substance: SITAGLIPTIN
     Indication: TYPE 2 DIABETES MELLITUS
     Dosage: 100 MILLIGRAM
  2. METFORMIN [Concomitant]
     Active Substance: METFORMIN HYDROCHLORIDE
     Indication: TYPE 2 DIABETES MELLITUS
     Dosage: 850 MILLIGRAM
  3. FILGRASTIM [Suspect]
     Active Substance: FILGRASTIM
     Indication: PANCYTOPENIA
     Dosage: UNK UNK, QD
     Route: 065
     Dates: start: 20181022
  4. OXALIPLATIN. [Concomitant]
     Active Substance: OXALIPLATIN
     Indication: COLORECTAL CANCER
     Dosage: 260 MILLIGRAM, Q3WK
     Dates: start: 20181010, end: 20181010
  5. CAPECITABINE. [Concomitant]
     Active Substance: CAPECITABINE
     Indication: COLORECTAL CANCER
     Dosage: 2000 MILLIGRAM/SQ. METER, BID FROM D1 TO D14, 21-DAY CYCLE
     Route: 048
     Dates: start: 20181010, end: 20181019
  6. LERCANIDIPINE [Concomitant]
     Active Substance: LERCANIDIPINE
     Indication: HYPERTENSION
     Dosage: 10 MILLIGRAM
  7. HYDROCHLORTHIAZID [Concomitant]
     Active Substance: HYDROCHLOROTHIAZIDE
     Indication: HYPERTENSION
     Dosage: 20 MILLIGRAM
  8. VALSARTAN. [Concomitant]
     Active Substance: VALSARTAN
     Indication: HYPERTENSION
     Dosage: 320 MILLIGRAM

REACTIONS (14)
  - Steatohepatitis [Unknown]
  - Mucosal inflammation [Unknown]
  - Pneumonia [Unknown]
  - Therapy non-responder [Unknown]
  - Neurotoxicity [Recovered/Resolved]
  - Cardiogenic shock [Fatal]
  - Respiratory failure [Unknown]
  - Multiple organ dysfunction syndrome [Fatal]
  - Condition aggravated [Unknown]
  - Cardiotoxicity [Not Recovered/Not Resolved]
  - Enterocolitis haemorrhagic [Unknown]
  - Cardiac failure [Unknown]
  - Respiratory tract infection [Unknown]
  - Septic shock [Fatal]

NARRATIVE: CASE EVENT DATE: 2018
